FAERS Safety Report 24031002 (Version 2)
Quarter: 2024Q3

REPORT INFORMATION
  Report Type: Spontaneous
  Country: US (occurrence: US)
  Receive Date: 20240628
  Receipt Date: 20240710
  Transmission Date: 20241016
  Serious: Yes (Hospitalization, Other)
  Sender: Unknown Manufacturer
  Company Number: US-OTTER-US-2024AST000247

PATIENT
  Age: 43 Year
  Sex: Male

DRUGS (1)
  1. METHOTREXATE [Suspect]
     Active Substance: METHOTREXATE
     Indication: Product used for unknown indication
     Dosage: 15 MILLIGRAM, QD, FOR 3 WEEKS
     Route: 065

REACTIONS (15)
  - Accidental overdose [Unknown]
  - Candida infection [Unknown]
  - Enterococcus test positive [Unknown]
  - Fall [Unknown]
  - Hyperbilirubinaemia [Not Recovered/Not Resolved]
  - Immunosuppression [Not Recovered/Not Resolved]
  - Staphylococcus test positive [Unknown]
  - Urinary tract infection [Unknown]
  - Acute kidney injury [Unknown]
  - Neutropenia [Unknown]
  - Oropharyngeal pain [Unknown]
  - Pancytopenia [Unknown]
  - Renal failure [Unknown]
  - Respiratory failure [Not Recovered/Not Resolved]
  - Septic shock [Not Recovered/Not Resolved]
